FAERS Safety Report 25944075 (Version 3)
Quarter: 2025Q4

REPORT INFORMATION
  Report Type: Spontaneous
  Country: US (occurrence: US)
  Receive Date: 20251021
  Receipt Date: 20251127
  Transmission Date: 20260118
  Serious: No
  Sender: MERCK SHARP & DOHME LLC
  Company Number: US-009507513-2340793

PATIENT
  Sex: Female
  Weight: 45.8 kg

DRUGS (8)
  1. WINREVAIR [Suspect]
     Active Substance: SOTATERCEPT-CSRK
     Indication: Product used for unknown indication
     Dates: start: 20250822, end: 20251017
  2. WINREVAIR [Suspect]
     Active Substance: SOTATERCEPT-CSRK
  3. WINREVAIR [Suspect]
     Active Substance: SOTATERCEPT-CSRK
  4. WINREVAIR [Suspect]
     Active Substance: SOTATERCEPT-CSRK
  5. REMODULIN [Suspect]
     Active Substance: TREPROSTINIL
     Indication: Pulmonary arterial hypertension
     Dosage: CURRENT DOSE WAS REPORTED AS 0.032 ?G/KG (SELF-FILL WITH 1.9 ML PER CASSETTE; RATE 20 MCL PER HOU...
     Route: 058
     Dates: start: 20250131
  6. GABAPENTIN [Concomitant]
     Active Substance: GABAPENTIN
  7. BUPRENORPHINE\NALOXONE [Concomitant]
     Active Substance: BUPRENORPHINE\NALOXONE
  8. IBUPROFEN [Concomitant]
     Active Substance: IBUPROFEN

REACTIONS (6)
  - Gastrointestinal disorder [Unknown]
  - Asthenia [Recovering/Resolving]
  - Flatulence [Unknown]
  - Fall [Recovered/Resolved with Sequelae]
  - Headache [Unknown]
  - Balance disorder [Unknown]

NARRATIVE: CASE EVENT DATE: 20250101
